FAERS Safety Report 8118564-3 (Version None)
Quarter: 2012Q1

REPORT INFORMATION
  Report Type: 
  Country: None (occurrence: None)
  Receive Date: 20120207
  Receipt Date: 20120202
  Transmission Date: 20120608
  Serious: Yes (Hospitalization, Other)
  Sender: FDA-Public Use
  Company Number: JP-PFIZER INC-2012029393

PATIENT
  Age: 69 Year
  Sex: Male

DRUGS (22)
  1. GABAPENTIN [Suspect]
     Dosage: 600 MG/DAY
     Route: 048
     Dates: start: 20100219, end: 20120118
  2. TEGRETOL [Concomitant]
     Dosage: 300 MG/DAY
  3. PLAVIX [Concomitant]
     Dosage: 75 MG/DAY
  4. RABEPRAZOLE SODIUM [Concomitant]
     Dosage: 10 MG/DAY
  5. MIGLITOL [Concomitant]
     Dosage: 150 MG/DAY
  6. METHYCOBAL [Concomitant]
     Dosage: 1500 UG/DAY
  7. DIART [Concomitant]
     Dosage: 60 MG/DAY
  8. KREMEZIN [Concomitant]
     Dosage: 6G/DAY
  9. AMARYL [Concomitant]
     Dosage: 2 MG/DAY
  10. CRESTOR [Concomitant]
     Dosage: 10 MG/DAY
  11. CONIEL [Concomitant]
     Dosage: UNK
  12. ZETIA [Concomitant]
     Dosage: 10 MG/DAY
  13. AMLODIPINE [Concomitant]
     Dosage: 5 MG/DAY
  14. GABAPENTIN [Suspect]
     Dosage: 400 MG/DAY
     Route: 048
     Dates: start: 20090918, end: 20100218
  15. ASPIRIN [Concomitant]
     Dosage: 100 MG/DAY
  16. ROCALTROL [Concomitant]
     Dosage: 0.25 MG/DAY
  17. DOXAZOSIN MESYLATE [Concomitant]
     Dosage: 2 MG/DAY
  18. MICARDIS [Concomitant]
     Dosage: 80 MG/DAY
  19. ACECOL [Concomitant]
     Dosage: 2 MG/DAY
  20. GABAPENTIN [Suspect]
     Indication: DIABETIC NEUROPATHY
     Dosage: 200 MG/DAY
     Route: 048
     Dates: start: 20090724, end: 20090917
  21. PLETAL [Concomitant]
     Dosage: 200 MG/DAY
  22. TRICHLORMETHIAZIDE [Concomitant]
     Dosage: 2 MG/DAY

REACTIONS (2)
  - MYOCLONUS [None]
  - GLOMERULAR FILTRATION RATE DECREASED [None]
